FAERS Safety Report 8434652-6 (Version None)
Quarter: 2012Q2

REPORT INFORMATION
  Report Type: 
  Country: None (occurrence: None)
  Receive Date: 20120323
  Receipt Date: 20110804
  Transmission Date: 20120825
  Serious: Yes (Hospitalization, Other)
  Sender: FDA-Public Use
  Company Number: 163-21880-11061121

PATIENT
  Age: 83 Year
  Sex: Male
  Weight: 5.2844 kg

DRUGS (3)
  1. VELCADE [Concomitant]
  2. REVLIMID [Suspect]
     Indication: MULTIPLE MYELOMA
     Dosage: 5 MG, Q DAY X 21 DAYS, PO
     Route: 048
     Dates: start: 20110407, end: 20110418
  3. ZOMETA [Concomitant]

REACTIONS (1)
  - TREMOR [None]
